FAERS Safety Report 14310888 (Version 2)
Quarter: 2018Q1

REPORT INFORMATION
  Report Type: Report from Study
  Country: None (occurrence: US)
  Receive Date: 20171221
  Receipt Date: 20180109
  Transmission Date: 20180509
  Serious: Yes (Other)
  Sender: FDA-Public Use
  Company Number: US-ABBVIE-17K-163-2196404-00

PATIENT
  Age: 38 Year
  Sex: Female
  Weight: 60.38 kg

DRUGS (2)
  1. PLAQUENIL [Concomitant]
     Active Substance: HYDROXYCHLOROQUINE SULFATE
     Indication: RHEUMATOID ARTHRITIS
  2. HUMIRA [Suspect]
     Active Substance: ADALIMUMAB
     Indication: ANKYLOSING SPONDYLITIS
     Route: 058
     Dates: start: 201705

REACTIONS (6)
  - Ankylosing spondylitis [Unknown]
  - Costochondritis [Unknown]
  - Off label use [Unknown]
  - Blindness [Unknown]
  - Facial pain [Unknown]
  - Uveitis [Unknown]

NARRATIVE: CASE EVENT DATE: 201709
